FAERS Safety Report 6766181-X (Version None)
Quarter: 2010Q2

REPORT INFORMATION
  Report Type: 
  Country: None (occurrence: None)
  Receive Date: 20100611
  Receipt Date: 20100601
  Transmission Date: 20101027
  Serious: Yes (Other)
  Sender: FDA-Public Use
  Company Number: ES-PFIZER INC-2010068455

PATIENT
  Sex: Male

DRUGS (1)
  1. GENOTONORM [Suspect]
     Dosage: UNK
     Route: 058
     Dates: start: 20100312

REACTIONS (3)
  - BREAST INFLAMMATION [None]
  - BREAST MASS [None]
  - BREAST PAIN [None]
